FAERS Safety Report 7082213-6 (Version None)
Quarter: 2010Q4

REPORT INFORMATION
  Report Type: 
  Country: None (occurrence: None)
  Receive Date: 20101103
  Receipt Date: 20100524
  Transmission Date: 20110411
  Serious: Yes (Hospitalization, Other)
  Sender: FDA-Public Use
  Company Number: PHHO2007DE18758

PATIENT
  Sex: Male
  Weight: 73.5 kg

DRUGS (5)
  1. SIMULECT [Suspect]
     Indication: LIVER TRANSPLANT
     Dosage: 20 MG, DAY 0
     Route: 042
  2. SIMULECT [Suspect]
     Dosage: 20 MG, ONCE/SINGLE
     Route: 042
     Dates: start: 20070828, end: 20070828
  3. SIMULECT [Suspect]
     Dosage: 20 MG
     Route: 048
     Dates: end: 20071022
  4. SANDIMMUNE [Suspect]
     Indication: LIVER TRANSPLANT
     Dosage: UNK
     Dates: start: 20071017, end: 20071022
  5. NO TREATMENT RECEIVED NOMED [Suspect]
     Indication: LIVER TRANSPLANT
     Dosage: NO TREATMENT
     Route: 048

REACTIONS (11)
  - BILIARY ANASTOMOSIS COMPLICATION [None]
  - BILIARY TRACT DILATION PROCEDURE [None]
  - ENDOSCOPIC RETROGRADE CHOLANGIOPANCREATOGRAPHY [None]
  - GRAFT LOSS [None]
  - HEPATIC CONGESTION [None]
  - HEPATIC ENZYME INCREASED [None]
  - HEPATIC FAILURE [None]
  - HEPATIC INFILTRATION EOSINOPHILIC [None]
  - HEPATIC NECROSIS [None]
  - LIVER TRANSPLANT [None]
  - RENAL FAILURE [None]
